FAERS Safety Report 7597321-0 (Version None)
Quarter: 2011Q3

REPORT INFORMATION
  Report Type: 
  Country: None (occurrence: None)
  Receive Date: 20110708
  Receipt Date: 20110513
  Transmission Date: 20111222
  Serious: No
  Sender: FDA-Public Use
  Company Number: US-GLAXOSMITHKLINE-A0927314A

PATIENT
  Age: 45 Year
  Sex: Female

DRUGS (2)
  1. FLOVENT [Suspect]
     Indication: ASTHMA
     Dosage: 2PUFF TWICE PER DAY
     Route: 055
     Dates: start: 20100401
  2. NO CONCURRENT MEDICATION [Concomitant]

REACTIONS (2)
  - PRODUCT QUALITY ISSUE [None]
  - NAUSEA [None]
